FAERS Safety Report 8042536-0 (Version None)
Quarter: 2012Q1

REPORT INFORMATION
  Report Type: 
  Country: None (occurrence: None)
  Receive Date: 20120112
  Receipt Date: 20120111
  Transmission Date: 20120608
  Serious: No
  Sender: FDA-Public Use
  Company Number: US-B.I. PHARMACEUTICALS,INC./RIDGEFIELD-2012-BP-00602BP

PATIENT
  Sex: Male

DRUGS (4)
  1. FINASTERIDE [Concomitant]
     Dosage: 5 MG
     Route: 048
  2. CRESTOR [Concomitant]
     Dosage: 20 MG
     Route: 048
  3. METOPROLOL [Concomitant]
     Dosage: 25 MG
     Route: 048
  4. PRADAXA [Suspect]
     Indication: CEREBROVASCULAR ACCIDENT PROPHYLAXIS
     Dosage: 300 MG
     Route: 048
     Dates: start: 20110701

REACTIONS (1)
  - SKIN BURNING SENSATION [None]
